FAERS Safety Report 8834422 (Version 1)
Quarter: 2012Q4

REPORT INFORMATION
  Report Type: Spontaneous
  Country: US (occurrence: None)
  Receive Date: 20121010
  Receipt Date: 20121010
  Transmission Date: 20130627
  Serious: No
  Sender: FDA-Public Use
  Company Number: None

PATIENT
  Sex: Female

DRUGS (1)
  1. TRAVATAN Z [Suspect]
     Dosage: Lot # 190382F
exp. date 1/31/2013

REACTIONS (4)
  - Eye irritation [None]
  - Condition aggravated [None]
  - Liquid product physical issue [None]
  - Product colour issue [None]
